FAERS Safety Report 5075073-6 (Version None)
Quarter: 2006Q3

REPORT INFORMATION
  Report Type: 
  Country: None (occurrence: None)
  Receive Date: 20060804
  Receipt Date: 20060722
  Transmission Date: 20061208
  Serious: Yes (Hospitalization)
  Sender: FDA-Public Use
  Company Number: 2006050957

PATIENT
  Age: 55 Year
  Sex: Female

DRUGS (4)
  1. GEODON [Suspect]
     Indication: SCHIZOAFFECTIVE DISORDER
     Dosage: 160 MG (80 MG, 2 IN 1 D),
     Dates: start: 20060103
  2. RISPERDAL [Concomitant]
  3. HALDOL [Concomitant]
  4. LORAZEPAM [Concomitant]

REACTIONS (5)
  - ALANINE AMINOTRANSFERASE INCREASED [None]
  - BLOOD ALKALINE PHOSPHATASE INCREASED [None]
  - BRAIN NATRIURETIC PEPTIDE INCREASED [None]
  - C-REACTIVE PROTEIN INCREASED [None]
  - FIBRIN D DIMER INCREASED [None]
